FAERS Safety Report 9226893 (Version 1)
Quarter: 2013Q2

REPORT INFORMATION
  Report Type: Spontaneous
  Country: US (occurrence: None)
  Receive Date: 20130410
  Receipt Date: 20130410
  Transmission Date: 20140414
  Serious: Yes (Hospitalization)
  Sender: FDA-Public Use
  Company Number: 1660082

PATIENT
  Age: 19 Year
  Sex: Female

DRUGS (4)
  1. FENTANYL CITRATE [Suspect]
     Indication: ANALGESIC THERAPY
     Route: 041
  2. MORPHINE SULPHATE [Suspect]
     Indication: INVESTIGATION
     Route: 042
  3. PROPOFOL [Concomitant]
  4. MANNITOL [Concomitant]

REACTIONS (4)
  - Intracranial pressure increased [None]
  - Sinus tachycardia [None]
  - Pyrexia [None]
  - Hypertension [None]
